FAERS Safety Report 5048101-1 (Version None)
Quarter: 2006Q3

REPORT INFORMATION
  Report Type: 
  Country: None (occurrence: None)
  Receive Date: 20060705
  Receipt Date: 20060620
  Transmission Date: 20061208
  Serious: Yes (Other)
  Sender: FDA-Public Use
  Company Number: SPVI-2006-00094

PATIENT
  Age: 6 Year
  Sex: Female
  Weight: 18.1 kg

DRUGS (3)
  1. ADDERALL 10 [Suspect]
     Indication: DISTURBANCE IN ATTENTION
     Dosage: SEE IMAGE
     Dates: start: 20050101, end: 20060501
  2. ADDERALL 10 [Suspect]
     Indication: DISTURBANCE IN ATTENTION
     Dosage: SEE IMAGE
     Dates: start: 20060501, end: 20060601
  3. ADDERALL 10 [Suspect]
     Indication: DISTURBANCE IN ATTENTION
     Dosage: SEE IMAGE
     Dates: start: 20060601

REACTIONS (2)
  - ABNORMAL BEHAVIOUR [None]
  - GLAUCOMA [None]
